FAERS Safety Report 17466105 (Version 1)
Quarter: 2020Q1

REPORT INFORMATION
  Report Type: Spontaneous
  Country: US (occurrence: US)
  Receive Date: 20200227
  Receipt Date: 20200227
  Transmission Date: 20200409
  Serious: No
  Sender: FDA-Public Use
  Company Number: US-TEVA-2020-US-1189215

PATIENT
  Sex: Male

DRUGS (2)
  1. ANCHEN BUPROPION [Concomitant]
     Indication: DEPRESSION
     Dosage: 1 DOSAGE FORMS DAILY;
     Route: 065
     Dates: start: 2017
  2. TADALAFIL. [Suspect]
     Active Substance: TADALAFIL
     Indication: ERECTILE DYSFUNCTION
     Dosage: 1 DOSAGE FORMS DAILY;
     Route: 048
     Dates: start: 201709

REACTIONS (1)
  - Therapeutic product effect decreased [Not Recovered/Not Resolved]
